FAERS Safety Report 5639378-X (Version None)
Quarter: 2008Q1

REPORT INFORMATION
  Report Type: 
  Country: None (occurrence: None)
  Receive Date: 20080226
  Receipt Date: 20080214
  Transmission Date: 20080703
  Serious: Yes (Other)
  Sender: FDA-Public Use
  Company Number: US-PFIZER INC-2008014960

PATIENT
  Age: 56 Year
  Sex: Female
  Weight: 47.727 kg

DRUGS (3)
  1. NEURONTIN [Suspect]
     Indication: PAIN
  2. LYRICA [Suspect]
     Indication: FIBROMYALGIA
     Dates: start: 20080204, end: 20080210
  3. ATIVAN [Concomitant]

REACTIONS (15)
  - CONFUSIONAL STATE [None]
  - DIARRHOEA [None]
  - DRUG INEFFECTIVE [None]
  - DRY MOUTH [None]
  - EAR PAIN [None]
  - EYE DISORDER [None]
  - FLATULENCE [None]
  - NASAL DISORDER [None]
  - PAIN [None]
  - PHARYNGOLARYNGEAL PAIN [None]
  - PNEUMONIA [None]
  - PRURITUS [None]
  - RASH [None]
  - SLEEP DISORDER [None]
  - URINARY TRACT INFECTION [None]
